FAERS Safety Report 11410670 (Version 4)
Quarter: 2015Q3

REPORT INFORMATION
  Report Type: Spontaneous
  Country: CA (occurrence: CA)
  Receive Date: 20150824
  Receipt Date: 20150909
  Transmission Date: 20151125
  Serious: No
  Sender: FDA-Public Use
  Company Number: CA-PFIZER INC-2015267115

PATIENT
  Age: 60 Year
  Sex: Female

DRUGS (6)
  1. NAPROXEN. [Concomitant]
     Active Substance: NAPROXEN
     Dosage: UNK
  2. XELJANZ [Suspect]
     Active Substance: TOFACITINIB CITRATE
     Indication: RHEUMATOID ARTHRITIS
     Dosage: 5 MG, 2X/DAY
     Route: 048
     Dates: start: 20150805
  3. MORPHINE [Concomitant]
     Active Substance: MORPHINE
     Dosage: UNK
  4. PROLIA [Concomitant]
     Active Substance: DENOSUMAB
     Dosage: UNK
  5. LYRICA [Concomitant]
     Active Substance: PREGABALIN
     Dosage: UNK
  6. CORTISONE [Concomitant]
     Active Substance: CORTISONE\HYDROCORTISONE
     Dosage: UNK

REACTIONS (4)
  - Vascular rupture [Recovering/Resolving]
  - Nausea [Not Recovered/Not Resolved]
  - Headache [Not Recovered/Not Resolved]
  - Dizziness [Unknown]

NARRATIVE: CASE EVENT DATE: 201508
